FAERS Safety Report 16640707 (Version 1)
Quarter: 2019Q3

REPORT INFORMATION
  Report Type: Spontaneous
  Country: US (occurrence: US)
  Receive Date: 20190729
  Receipt Date: 20190729
  Transmission Date: 20191004
  Serious: Yes (Hospitalization)
  Sender: FDA-Public Use
  Company Number: US-STRIDES ARCOLAB LIMITED-2019SP002791

PATIENT
  Age: 68 Year
  Sex: Male

DRUGS (2)
  1. TACROLIMUS. [Concomitant]
     Active Substance: TACROLIMUS
     Indication: RENAL TRANSPLANT
     Dosage: 16 MG PER DAY
     Route: 065
  2. MYCOPHENOLATE MOFETIL. [Suspect]
     Active Substance: MYCOPHENOLATE MOFETIL
     Indication: RENAL TRANSPLANT
     Dosage: 2 G PER DAY
     Route: 065

REACTIONS (6)
  - Mouth ulceration [Recovered/Resolved]
  - Erythema [Recovered/Resolved]
  - Oral pain [Recovered/Resolved]
  - Mouth haemorrhage [Recovered/Resolved]
  - Odynophagia [Recovered/Resolved]
  - Aphthous ulcer [Recovered/Resolved]
